FAERS Safety Report 8984291 (Version 3)
Quarter: 2013Q1

REPORT INFORMATION
  Report Type: Spontaneous
  Country: UZ (occurrence: None)
  Receive Date: 20121217
  Receipt Date: 20130115
  Transmission Date: 20140127
  Serious: Yes (Life-Threatening)
  Sender: FDA-Public Use
  Company Number: 1527893

PATIENT
  Age: 49 Year
  Sex: Female

DRUGS (2)
  1. MEROPENEM [Suspect]
     Indication: SEPSIS
     Dosage: 3 G GRAM(S) UNKNOWN, INTRAVENOUS (NOT
     Route: 042
     Dates: start: 20120928, end: 20120929
  2. PERFALGAN [Concomitant]

REACTIONS (5)
  - Asphyxia [None]
  - Abdominal pain upper [None]
  - Blood pressure decreased [None]
  - Nausea [None]
  - Sepsis [None]
